FAERS Safety Report 22069008 (Version 2)
Quarter: 2023Q1

REPORT INFORMATION
  Report Type: Spontaneous
  Country: GR (occurrence: GR)
  Receive Date: 20230307
  Receipt Date: 20230329
  Transmission Date: 20230417
  Serious: No
  Sender: FDA-Public Use
  Company Number: GR-PFIZER INC-PV202300035761

PATIENT
  Age: 14 Year
  Sex: Male
  Weight: 40 kg

DRUGS (2)
  1. GENOTROPIN [Suspect]
     Active Substance: SOMATROPIN
     Indication: Growth hormone deficiency
     Dosage: 5.6 MG/6 DAYS /12 MG PEN (0.8 MG X 2 DAYS AND 1 MG X 4 DAYS, 1 DAY OFF)
     Route: 058
     Dates: start: 202301
  2. GENOTROPIN [Suspect]
     Active Substance: SOMATROPIN
     Indication: Growth hormone deficiency
     Dosage: 5.6 MG/ 6 DAYS/12 MG PEN (0.8 MG X 2 DAYS AND 1 MG X 4 DAYS, 1 DAY OFF)
     Route: 058
     Dates: start: 202301

REACTIONS (2)
  - Wrong technique in device usage process [Unknown]
  - Device breakage [Unknown]
